FAERS Safety Report 7399759-3 (Version None)
Quarter: 2011Q2

REPORT INFORMATION
  Report Type: 
  Country: None (occurrence: None)
  Receive Date: 20110407
  Receipt Date: 20110328
  Transmission Date: 20111010
  Serious: Yes (Death)
  Sender: FDA-Public Use
  Company Number: MA-WATSON-2011-04886

PATIENT
  Age: 50 Year
  Sex: Female

DRUGS (2)
  1. PREDNISONE (WATSON LABORATORIES) [Suspect]
     Indication: VASCULITIS
     Dosage: DECREASED TO 10 MG, DAILY
     Route: 065
  2. CYCLOPHOSPHAMIDE [Suspect]
     Indication: VASCULITIS
     Dosage: UNK

REACTIONS (2)
  - DISSEMINATED INTRAVASCULAR COAGULATION [None]
  - KAPOSI'S SARCOMA [None]
